FAERS Safety Report 21788856 (Version 2)
Quarter: 2022Q4

REPORT INFORMATION
  Report Type: Spontaneous
  Country: US (occurrence: US)
  Receive Date: 20221228
  Receipt Date: 20221230
  Transmission Date: 20230112
  Serious: No
  Sender: FDA-Public Use
  Company Number: US-SA-SAC20221223001214

PATIENT
  Age: 73 Year
  Sex: Male

DRUGS (12)
  1. DUPIXENT [Suspect]
     Active Substance: DUPILUMAB
     Indication: Rash
     Dosage: 300 MG, QOW
     Route: 058
     Dates: start: 20201215
  2. DUPIXENT [Suspect]
     Active Substance: DUPILUMAB
     Indication: Dermatosis
  3. CLOBETASOL [Concomitant]
     Active Substance: CLOBETASOL
  4. ATORVASTATIN [Concomitant]
     Active Substance: ATORVASTATIN
  5. OMEPRAZOLE [Concomitant]
     Active Substance: OMEPRAZOLE
  6. ALFUZOSIN [Concomitant]
     Active Substance: ALFUZOSIN
  7. CREON [Concomitant]
     Active Substance: PANCRELIPASE AMYLASE\PANCRELIPASE LIPASE\PANCRELIPASE PROTEASE
  8. OLOPATADINE [Concomitant]
     Active Substance: OLOPATADINE
  9. FLUTICASONE [Concomitant]
     Active Substance: FLUTICASONE
  10. TRIAMCINOLONE [Concomitant]
     Active Substance: TRIAMCINOLONE
  11. LISINOPRIL [Concomitant]
     Active Substance: LISINOPRIL
  12. YERVOY [Concomitant]
     Active Substance: IPILIMUMAB

REACTIONS (3)
  - Rash [Unknown]
  - Intentional dose omission [Unknown]
  - Product use in unapproved indication [Unknown]

NARRATIVE: CASE EVENT DATE: 20201212
